FAERS Safety Report 20828729 (Version 3)
Quarter: 2022Q2

REPORT INFORMATION
  Report Type: Spontaneous
  Country: US (occurrence: US)
  Receive Date: 20220513
  Receipt Date: 20220604
  Transmission Date: 20220721
  Serious: No
  Sender: FDA-Public Use
  Company Number: US-SANOFI-01087271

PATIENT
  Sex: Female

DRUGS (2)
  1. LANTUS SOLOSTAR [Suspect]
     Active Substance: INSULIN GLARGINE
     Indication: Type 2 diabetes mellitus
     Dosage: 75 U QD
  2. LIPRO [Concomitant]
     Dosage: BID
     Route: 065

REACTIONS (3)
  - Blood glucose fluctuation [Unknown]
  - Device defective [Unknown]
  - Incorrect dose administered by device [Unknown]
